FAERS Safety Report 15435913 (Version 1)
Quarter: 2018Q3

REPORT INFORMATION
  Report Type: Spontaneous
  Country: IT (occurrence: IT)
  Receive Date: 20180927
  Receipt Date: 20180927
  Transmission Date: 20181010
  Serious: Yes (Hospitalization)
  Sender: FDA-Public Use
  Company Number: PHHY2018IT109850

PATIENT
  Age: 67 Year
  Sex: Male

DRUGS (4)
  1. FLUOROURACILE TEVA [Suspect]
     Active Substance: FLUOROURACIL
     Indication: COLON CANCER STAGE III
     Dosage: 620 MG, 1 CYCLIC
     Route: 041
     Dates: start: 20080226
  2. 5?FU [Suspect]
     Active Substance: FLUOROURACIL
     Indication: PRODUCT USED FOR UNKNOWN INDICATION
     Dosage: 930 MG, 1 CYCLIC
     Route: 042
     Dates: start: 20080226
  3. CALFOLEX [Concomitant]
     Active Substance: LEUCOVORIN CALCIUM
     Indication: COLON CANCER STAGE III
     Dosage: 310 MG, UNK
     Route: 042
  4. OXALIPLATIN. [Suspect]
     Active Substance: OXALIPLATIN
     Indication: PRODUCT USED FOR UNKNOWN INDICATION
     Dosage: 130 MG, CYCLIC
     Route: 042
     Dates: start: 20080226

REACTIONS (2)
  - Pulmonary embolism [Not Recovered/Not Resolved]
  - Atrial fibrillation [Not Recovered/Not Resolved]

NARRATIVE: CASE EVENT DATE: 20080311
